FAERS Safety Report 5824068-0 (Version None)
Quarter: 2008Q3

REPORT INFORMATION
  Report Type: 
  Country: None (occurrence: None)
  Receive Date: 20080728
  Receipt Date: 20080718
  Transmission Date: 20090109
  Serious: Yes (Hospitalization, Other)
  Sender: FDA-Public Use
  Company Number: JP-BRISTOL-MYERS SQUIBB COMPANY-14264022

PATIENT
  Age: 5 Year
  Sex: Female

DRUGS (12)
  1. ENDOXAN [Suspect]
     Indication: ACUTE LYMPHOCYTIC LEUKAEMIA
     Dosage: DOSE-940 MG FROM 29MAY08-29MAY08 AND 940 MG FROM 09JUN-19JUN08
     Route: 041
     Dates: start: 20080529, end: 20080619
  2. ONCOVIN [Suspect]
     Indication: ACUTE LYMPHOCYTIC LEUKAEMIA
     Route: 042
     Dates: start: 20080528, end: 20080625
  3. SOLITA-T NO. 3 [Suspect]
     Indication: CYSTITIS HAEMORRHAGIC
     Dosage: THERAPY FROM 21MAY08-UNK(DOSE UNK),THERAPY FROM 18JUN08-UNK(DOSE UNK)
     Route: 065
     Dates: start: 20080521
  4. PREDONINE [Concomitant]
     Indication: ACUTE LYMPHOCYTIC LEUKAEMIA
     Route: 048
     Dates: start: 20080521, end: 20080624
  5. COTRIM [Concomitant]
     Dates: start: 20080519
  6. PRAVASTATIN SODIUM [Concomitant]
  7. FLUCONAZOLE [Concomitant]
     Dates: start: 20080519, end: 20080701
  8. PANTHENOL [Concomitant]
  9. GRANISETRON HCL [Concomitant]
  10. LEUNASE [Concomitant]
     Dates: start: 20080605, end: 20080625
  11. DAUNOMYCIN [Concomitant]
     Dates: start: 20080530, end: 20080624
  12. PREDNISOLONE [Concomitant]
     Dates: start: 20080521, end: 20080624

REACTIONS (5)
  - ALTERED STATE OF CONSCIOUSNESS [None]
  - BINOCULAR EYE MOVEMENT DISORDER [None]
  - ILEUS PARALYTIC [None]
  - INAPPROPRIATE ANTIDIURETIC HORMONE SECRETION [None]
  - SPEECH DISORDER [None]
